FAERS Safety Report 13727773 (Version 1)
Quarter: 2017Q3

REPORT INFORMATION
  Report Type: Spontaneous
  Country: US (occurrence: US)
  Receive Date: 20170707
  Receipt Date: 20170707
  Transmission Date: 20171127
  Serious: Yes (Other)
  Sender: FDA-Public Use
  Company Number: US-BAYER-2017-125939

PATIENT
  Sex: Male

DRUGS (1)
  1. CIPROFLOXACIN. [Suspect]
     Active Substance: CIPROFLOXACIN
     Indication: HUMAN EHRLICHIOSIS
     Dosage: UNK

REACTIONS (5)
  - Off label use [None]
  - Neuropsychiatric symptoms [Recovering/Resolving]
  - Psychotic disorder [Recovering/Resolving]
  - Mental status changes [Recovering/Resolving]
  - Product use in unapproved indication [None]
